FAERS Safety Report 4386263-X (Version None)
Quarter: 2004Q2

REPORT INFORMATION
  Report Type: 
  Country: None (occurrence: None)
  Receive Date: 20040623
  Receipt Date: 20040614
  Transmission Date: 20050107
  Serious: Yes (Death)
  Sender: FDA-Public Use
  Company Number: JP-JNJFOC-20040400845

PATIENT
  Age: 52 Year
  Sex: Male

DRUGS (3)
  1. RISPERDAL [Suspect]
     Dosage: 2 MG, 1 IN 1 DAY, ORAL
     Route: 048
  2. HALOMOUTH (HALOPERIDOL DECANOATE) INJECTION [Suspect]
     Dosage: 150 MG, IN 2 WEEK, INTRAMUSCULAR
     Route: 030
  3. PSYCHOTROPIC AGENTS (ANTIPSYCHOTICS) [Concomitant]

REACTIONS (1)
  - DEATH [None]
